FAERS Safety Report 7689610-6 (Version None)
Quarter: 2011Q3

REPORT INFORMATION
  Report Type: 
  Country: None (occurrence: None)
  Receive Date: 20110817
  Receipt Date: 20110815
  Transmission Date: 20111222
  Serious: Yes (Hospitalization, Other)
  Sender: FDA-Public Use
  Company Number: US-PFIZER INC-2011187879

PATIENT
  Sex: Female
  Weight: 74.376 kg

DRUGS (1)
  1. LYRICA [Suspect]
     Indication: FIBROMYALGIA
     Dosage: 100 MG, 3X/DAY
     Route: 048
     Dates: start: 20080101

REACTIONS (3)
  - CHEST PAIN [None]
  - DYSLEXIA [None]
  - OEDEMA PERIPHERAL [None]
